FAERS Safety Report 15648638 (Version 2)
Quarter: 2018Q4

REPORT INFORMATION
  Report Type: Spontaneous
  Country: US (occurrence: US)
  Receive Date: 20181122
  Receipt Date: 20181126
  Transmission Date: 20190205
  Serious: No
  Sender: FDA-Public Use
  Company Number: US-TEVA-2018-US-976380

PATIENT
  Sex: Male

DRUGS (2)
  1. PROPRANOLOL HYDROCHLORIDE IMPAX [Suspect]
     Active Substance: PROPRANOLOL HYDROCHLORIDE
     Indication: ATRIAL FIBRILLATION
     Dosage: HALF TABLET OF THE 10 MG TWICE A DAY
     Route: 065
  2. PROPRANOLOL HYDROCHLORIDE IMPAX [Suspect]
     Active Substance: PROPRANOLOL HYDROCHLORIDE
     Indication: PALPITATIONS

REACTIONS (2)
  - Palpitations [Recovered/Resolved]
  - Product substitution issue [Unknown]
